FAERS Safety Report 9776686 (Version 2)
Quarter: 2013Q4

REPORT INFORMATION
  Report Type: Spontaneous
  Country: BR (occurrence: BR)
  Receive Date: 20131220
  Receipt Date: 20131220
  Transmission Date: 20140711
  Serious: Yes (Death, Hospitalization, Other)
  Sender: FDA-Public Use
  Company Number: BR-ABBVIE-13P-020-1124843-00

PATIENT
  Age: 43 Year
  Sex: Male
  Weight: 103 kg

DRUGS (13)
  1. HUMIRA [Suspect]
     Indication: ANKYLOSING SPONDYLITIS
     Route: 058
     Dates: start: 20130301, end: 20130529
  2. HUMIRA [Suspect]
     Indication: SPONDYLITIS
  3. CLARITHROMYCIN [Suspect]
     Indication: PRODUCT USED FOR UNKNOWN INDICATION
  4. CIPROFLOXACIN [Suspect]
     Indication: PRODUCT USED FOR UNKNOWN INDICATION
     Route: 042
  5. CEFEPIME [Suspect]
     Indication: PRODUCT USED FOR UNKNOWN INDICATION
  6. PREDNISONE [Concomitant]
     Indication: PRODUCT USED FOR UNKNOWN INDICATION
     Dosage: AT MORNING
     Dates: start: 20080411
  7. OMEPRAZOLE [Concomitant]
     Indication: PRODUCT USED FOR UNKNOWN INDICATION
     Dates: end: 20130704
  8. ADDERA D3 [Concomitant]
     Indication: PRODUCT USED FOR UNKNOWN INDICATION
     Dates: end: 20130704
  9. ALLOPURINOL [Concomitant]
     Indication: PRODUCT USED FOR UNKNOWN INDICATION
     Dates: end: 20130704
  10. NAPROXEN [Concomitant]
     Indication: PRODUCT USED FOR UNKNOWN INDICATION
     Dates: end: 20130704
  11. LOSARTAN [Concomitant]
     Indication: PRODUCT USED FOR UNKNOWN INDICATION
     Dates: end: 20130704
  12. HYDROCHLOROTHIAZIDE [Concomitant]
     Indication: PRODUCT USED FOR UNKNOWN INDICATION
     Dates: end: 20130704
  13. CITALOPRAM [Concomitant]
     Indication: PRODUCT USED FOR UNKNOWN INDICATION
     Dates: end: 20130704

REACTIONS (18)
  - Respiratory failure [Fatal]
  - Dengue fever [Unknown]
  - Hepatic enzyme abnormal [Unknown]
  - Miliary pneumonia [Unknown]
  - Tuberculosis [Unknown]
  - Pyrexia [Unknown]
  - Weight decreased [Unknown]
  - General physical health deterioration [Unknown]
  - Disseminated tuberculosis [Unknown]
  - Hepatosplenomegaly [Unknown]
  - Thrombocytopenia [Unknown]
  - Thrombocytopenia [Unknown]
  - Pyrexia [Unknown]
  - Pyrexia [Unknown]
  - Headache [Unknown]
  - Dyspnoea [Unknown]
  - Infection [Unknown]
  - Dengue fever [Fatal]
